FAERS Safety Report 7259499-8 (Version None)
Quarter: 2011Q1

REPORT INFORMATION
  Report Type: 
  Country: None (occurrence: None)
  Receive Date: 20110129
  Receipt Date: 20100528
  Transmission Date: 20110831
  Serious: Yes (Other)
  Sender: FDA-Public Use
  Company Number: US-PFIZER INC-2010041768

PATIENT
  Sex: Female

DRUGS (1)
  1. RELPAX [Suspect]
     Indication: MIGRAINE
     Dosage: UNK

REACTIONS (3)
  - CHEST DISCOMFORT [None]
  - DRUG INEFFECTIVE [None]
  - ASTHENIA [None]
